FAERS Safety Report 23554122 (Version 1)
Quarter: 2024Q1

REPORT INFORMATION
  Report Type: Spontaneous
  Country: US (occurrence: None)
  Receive Date: 20240222
  Receipt Date: 20240222
  Transmission Date: 20240410
  Serious: No
  Sender: FDA-Public Use
  Company Number: None

PATIENT
  Age: 69 Year
  Sex: Male
  Weight: 108.9 kg

DRUGS (2)
  1. OZEMPIC [Suspect]
     Active Substance: SEMAGLUTIDE
     Indication: Type 2 diabetes mellitus
     Dosage: OTHER QUANTITY : 1 INJECTION(S);?FREQUENCY : WEEKLY;?OTHER ROUTE : ONCE A WEEK INJECTION;?
     Route: 050
     Dates: start: 20231222
  2. METFORMIN HYDROCHLORIDE [Concomitant]
     Active Substance: METFORMIN HYDROCHLORIDE

REACTIONS (2)
  - Visual impairment [None]
  - Arthralgia [None]

NARRATIVE: CASE EVENT DATE: 20231222
